FAERS Safety Report 8147704-5 (Version None)
Quarter: 2012Q1

REPORT INFORMATION
  Report Type: 
  Country: None (occurrence: None)
  Receive Date: 20120218
  Receipt Date: 20110303
  Transmission Date: 20120608
  Serious: No
  Sender: FDA-Public Use
  Company Number: US-ALLERGAN-1103072US

PATIENT
  Sex: Female

DRUGS (4)
  1. BOTOX COSMETIC [Suspect]
     Indication: SKIN WRINKLING
     Dosage: 28 UNITS, SINGLE
     Dates: start: 20101101, end: 20101101
  2. BOTOX COSMETIC [Suspect]
     Dosage: UNK
     Dates: start: 20101201, end: 20101201
  3. TAMOXIFEN CITRATE [Concomitant]
     Indication: BREAST CANCER
     Dosage: UNK
     Dates: start: 20100101
  4. JUVEDERM [Suspect]
     Indication: PRODUCT USED FOR UNKNOWN INDICATION
     Dosage: UNK
     Dates: start: 20110101, end: 20110101

REACTIONS (8)
  - DIZZINESS [None]
  - TENSION HEADACHE [None]
  - RHINALGIA [None]
  - VISION BLURRED [None]
  - HEADACHE [None]
  - HYPOAESTHESIA [None]
  - DYSPNOEA [None]
  - EYE SWELLING [None]
